FAERS Safety Report 24230107 (Version 3)
Quarter: 2024Q4

REPORT INFORMATION
  Report Type: Spontaneous
  Country: PT (occurrence: PT)
  Receive Date: 20240820
  Receipt Date: 20241024
  Transmission Date: 20250115
  Serious: Yes (Hospitalization, Other)
  Sender: SANDOZ
  Company Number: PT-CDSU_IT-PT-MEN-107839

PATIENT
  Age: 87 Year
  Sex: Female

DRUGS (3)
  1. QUETIAPINE [Suspect]
     Active Substance: QUETIAPINE
     Dosage: 100 MG, QD
     Route: 065
  2. QUETIAPINE [Suspect]
     Active Substance: QUETIAPINE
     Indication: Dementia
     Dosage: UNK
     Route: 065
  3. RANOLAZINE [Suspect]
     Active Substance: RANOLAZINE
     Indication: Left ventricular dysfunction
     Dosage: UNK
     Route: 048

REACTIONS (12)
  - Dementia [Unknown]
  - Visual impairment [Unknown]
  - Pathological fracture [Unknown]
  - Injury [Unknown]
  - Dehydration [Unknown]
  - Varicose vein [Unknown]
  - Amaurosis [Unknown]
  - Urinary tract infection [Unknown]
  - Orthostatic hypotension [Recovered/Resolved]
  - Syncope [Recovered/Resolved]
  - Fall [Recovered/Resolved]
  - Product use in unapproved indication [Recovered/Resolved]
